FAERS Safety Report 10417343 (Version 1)
Quarter: 2014Q3

REPORT INFORMATION
  Report Type: Spontaneous
  Country: US (occurrence: US)
  Receive Date: 20140828
  Receipt Date: 20140828
  Transmission Date: 20150326
  Serious: Yes (Hospitalization)
  Sender: FDA-Public Use
  Company Number: US-BRISTOL-MYERS SQUIBB COMPANY-21323936

PATIENT
  Age: 73 Year
  Sex: Male

DRUGS (10)
  1. PEPCID [Concomitant]
     Active Substance: FAMOTIDINE
  2. SIMVASTATIN. [Concomitant]
     Active Substance: SIMVASTATIN
  3. NEURONTIN [Concomitant]
     Active Substance: GABAPENTIN
  4. ELIQUIS [Suspect]
     Active Substance: APIXABAN
     Dosage: LAST DOSE:18AUG2014.
  5. LEVOPHED [Concomitant]
     Active Substance: NOREPINEPHRINE BITARTRATE
  6. RENAGEL [Concomitant]
     Active Substance: SEVELAMER HYDROCHLORIDE
  7. CITRACAL [Concomitant]
     Active Substance: CALCIUM CITRATE
  8. ALBUTEROL. [Concomitant]
     Active Substance: ALBUTEROL
  9. EPOGEN [Concomitant]
     Active Substance: ERYTHROPOIETIN
  10. ZOCOR [Concomitant]
     Active Substance: SIMVASTATIN

REACTIONS (1)
  - Renal failure chronic [Unknown]
